FAERS Safety Report 15809827 (Version 2)
Quarter: 2021Q1

REPORT INFORMATION
  Report Type: Spontaneous
  Country: US (occurrence: US)
  Receive Date: 20190111
  Receipt Date: 20210115
  Transmission Date: 20210419
  Serious: No
  Sender: FDA-Public Use
  Company Number: US-ROCHE-2090321

PATIENT
  Age: 60 Year
  Sex: Male
  Weight: 115.77 kg

DRUGS (6)
  1. RITUXAN [Suspect]
     Active Substance: RITUXIMAB
     Indication: B-CELL LYMPHOMA
     Dosage: 1 MG/ML, 950ML INFUSION ;ONGOING: NO, 950 MG IN 950 SODIUM CHLORIDE ONCE A WEEK FOR 4 WEEKS
     Route: 042
     Dates: start: 20180118
  2. RITUXAN [Suspect]
     Active Substance: RITUXIMAB
     Indication: NON-HODGKIN^S LYMPHOMA
  3. MIRALAX [Concomitant]
     Active Substance: POLYETHYLENE GLYCOL 3350
     Indication: CONSTIPATION
     Dosage: ONGOING: YES
  4. CORTISONE [Concomitant]
     Active Substance: CORTISONE
     Indication: MYALGIA
  5. SODIUM CHLORIDE. [Concomitant]
     Active Substance: SODIUM CHLORIDE
  6. CORTISONE [Concomitant]
     Active Substance: CORTISONE
     Indication: BACK PAIN
     Dosage: ONGOING: UNKNOWN

REACTIONS (5)
  - Myalgia [Unknown]
  - Lymphadenopathy [Not Recovered/Not Resolved]
  - Mesenteric panniculitis [Unknown]
  - Back pain [Recovered/Resolved]
  - Chest discomfort [Recovered/Resolved]

NARRATIVE: CASE EVENT DATE: 20180118
